FAERS Safety Report 14509493 (Version 1)
Quarter: 2018Q1

REPORT INFORMATION
  Report Type: Spontaneous
  Country: US (occurrence: US)
  Receive Date: 20180209
  Receipt Date: 20180209
  Transmission Date: 20180509
  Serious: Yes (Other)
  Sender: FDA-Public Use
  Company Number: US-RECKITT BENCKISER HEALTHCARE INT LIMITED-RB-81975-2018

PATIENT
  Age: 57 Year
  Sex: Female

DRUGS (1)
  1. MUCINEX DM MAXIMUM STRENGTH [Suspect]
     Active Substance: DEXTROMETHORPHAN HYDROBROMIDE\GUAIFENESIN
     Indication: PRODUCT USED FOR UNKNOWN INDICATION
     Dosage: 1/2 TABLET ,ONE TIME DOSE
     Route: 065
     Dates: start: 20180203

REACTIONS (3)
  - Wrong technique in product usage process [Unknown]
  - Panic attack [Unknown]
  - Limb discomfort [Unknown]

NARRATIVE: CASE EVENT DATE: 20180203
